FAERS Safety Report 9282707 (Version 1)
Quarter: 2013Q2

REPORT INFORMATION
  Report Type: Spontaneous
  Country: BR (occurrence: BR)
  Receive Date: 20130510
  Receipt Date: 20130510
  Transmission Date: 20140414
  Serious: Yes (Other)
  Sender: FDA-Public Use
  Company Number: BR-BRISTOL-MYERS SQUIBB COMPANY-18876342

PATIENT
  Age: 63 Year
  Sex: Female

DRUGS (15)
  1. GLIFAGE [Suspect]
  2. METHOTREXATE [Suspect]
  3. MOTILIUM [Suspect]
  4. ENDOFOLIN [Concomitant]
  5. LOSARTAN [Concomitant]
  6. HIGROTON [Concomitant]
  7. SYNTHROID [Concomitant]
  8. SIMVASTATIN [Concomitant]
  9. PANTOPRAZOLE [Concomitant]
  10. TRAVATAN [Concomitant]
  11. HYDROCHLOROTHIAZIDE [Concomitant]
  12. PILOCARPINE [Concomitant]
  13. MABTHERA [Concomitant]
     Indication: SJOGREN^S SYNDROME
     Dosage: START DATE: UNK
     Route: 042
     Dates: end: 201209
  14. ESCITALOPRAM [Concomitant]
  15. BUPROPION [Concomitant]

REACTIONS (7)
  - Labyrinthitis [Recovering/Resolving]
  - Constipation [Recovering/Resolving]
  - Blood pressure abnormal [Recovering/Resolving]
  - Dry eye [Recovering/Resolving]
  - Somnolence [Recovering/Resolving]
  - Anaemia [Recovering/Resolving]
  - Diarrhoea [Recovering/Resolving]
